FAERS Safety Report 24054443 (Version 1)
Quarter: 2024Q3

REPORT INFORMATION
  Report Type: Spontaneous
  Country: US (occurrence: US)
  Receive Date: 20240705
  Receipt Date: 20240705
  Transmission Date: 20241016
  Serious: Yes (Other)
  Sender: RANBAXY
  Company Number: US-SUN PHARMACEUTICAL INDUSTRIES LTD-2024R1-453504

PATIENT
  Age: 37 Year
  Sex: Male

DRUGS (8)
  1. DOXORUBICIN [Suspect]
     Active Substance: DOXORUBICIN
     Indication: Cutaneous lymphoma
     Dosage: UNK
     Route: 065
  2. LENALIDOMIDE [Suspect]
     Active Substance: LENALIDOMIDE
     Indication: Cutaneous lymphoma
     Dosage: UNK
     Route: 065
  3. PREDNISONE [Suspect]
     Active Substance: PREDNISONE
     Indication: Cutaneous lymphoma
     Dosage: UNK
     Route: 065
  4. VINCRISTINE [Suspect]
     Active Substance: VINCRISTINE
     Indication: Cutaneous lymphoma
     Dosage: UNK
     Route: 065
  5. CYCLOPHOSPHAMIDE [Suspect]
     Active Substance: CYCLOPHOSPHAMIDE
     Indication: Cutaneous lymphoma
     Dosage: UNK
     Route: 065
  6. ETOPOSIDE PHOSPHATE [Suspect]
     Active Substance: ETOPOSIDE PHOSPHATE
     Indication: Cutaneous lymphoma
     Dosage: UNK
     Route: 065
  7. PRALATREXATE [Suspect]
     Active Substance: PRALATREXATE
     Indication: Cutaneous lymphoma
     Dosage: UNK
     Route: 065
  8. ROMIDEPSIN [Suspect]
     Active Substance: ROMIDEPSIN
     Indication: Cutaneous lymphoma
     Dosage: UNK
     Route: 065

REACTIONS (1)
  - Disease progression [Unknown]
